FAERS Safety Report 8148479-6 (Version None)
Quarter: 2012Q1

REPORT INFORMATION
  Report Type: 
  Country: None (occurrence: None)
  Receive Date: 20120218
  Receipt Date: 20110606
  Transmission Date: 20120608
  Serious: No
  Sender: FDA-Public Use
  Company Number: US-ALLERGAN-1107712US

PATIENT

DRUGS (2)
  1. JUVEDERM XC [Suspect]
     Indication: SKIN WRINKLING
     Dosage: UNK
     Dates: start: 20110523, end: 20110523
  2. BOTOX COSMETIC [Suspect]
     Indication: SKIN WRINKLING
     Dosage: UNK
     Route: 030

REACTIONS (1)
  - INJECTION SITE HAEMATOMA [None]
